FAERS Safety Report 6530685-5 (Version None)
Quarter: 2010Q1

REPORT INFORMATION
  Report Type: 
  Country: None (occurrence: None)
  Receive Date: 20100108
  Receipt Date: 20081119
  Transmission Date: 20100710
  Serious: No
  Sender: FDA-Public Use
  Company Number: A0758178A

PATIENT
  Sex: Male

DRUGS (1)
  1. LOVAZA [Suspect]
     Indication: DRUG USE FOR UNKNOWN INDICATION
     Dosage: 2000MG UNKNOWN
     Route: 048

REACTIONS (1)
  - INFLUENZA LIKE ILLNESS [None]
